FAERS Safety Report 17566196 (Version 3)
Quarter: 2020Q2

REPORT INFORMATION
  Report Type: Spontaneous
  Country: IT (occurrence: IT)
  Receive Date: 20200320
  Receipt Date: 20200614
  Transmission Date: 20200713
  Serious: Yes (Death, Life-Threatening, Hospitalization, Other)
  Sender: FDA-Public Use
  Company Number: NVSC2020IT079534

PATIENT
  Age: 46 Year
  Sex: Male

DRUGS (6)
  1. PREDNISONE. [Suspect]
     Active Substance: PREDNISONE
     Indication: LIVER TRANSPLANT
     Dosage: UNK
     Route: 065
  2. CYCLOSPORINE. [Suspect]
     Active Substance: CYCLOSPORINE
     Indication: LIVER TRANSPLANT
     Dosage: 8 MG/KG, QD
     Route: 065
  3. CYCLOSPORINE. [Suspect]
     Active Substance: CYCLOSPORINE
     Indication: IMMUNOSUPPRESSANT DRUG THERAPY
  4. MYCOPHENOLATE MOFETIL. [Suspect]
     Active Substance: MYCOPHENOLATE MOFETIL
     Indication: LIVER TRANSPLANT
     Dosage: UNK
     Route: 065
  5. PREDNISONE. [Suspect]
     Active Substance: PREDNISONE
     Indication: IMMUNOSUPPRESSANT DRUG THERAPY
  6. MYCOPHENOLATE MOFETIL. [Suspect]
     Active Substance: MYCOPHENOLATE MOFETIL
     Indication: IMMUNOSUPPRESSANT DRUG THERAPY

REACTIONS (19)
  - Confusional state [Fatal]
  - Dysprosody [Fatal]
  - Toxicity to various agents [Recovered/Resolved]
  - Muscle disorder [Recovered/Resolved]
  - Dysarthria [Fatal]
  - Hyperreflexia [Recovered/Resolved]
  - Locked-in syndrome [Fatal]
  - Clonus [Recovered/Resolved]
  - Posterior reversible encephalopathy syndrome [Recovered/Resolved]
  - Neurotoxicity [Recovered/Resolved]
  - Extensor plantar response [Recovered/Resolved]
  - Encephalopathy [Fatal]
  - Psychomotor hyperactivity [Fatal]
  - Altered state of consciousness [Fatal]
  - Unresponsive to stimuli [Fatal]
  - Lack of spontaneous speech [Recovered/Resolved]
  - Nervous system disorder [Unknown]
  - Cytotoxic oedema [Fatal]
  - Product use in unapproved indication [Unknown]
